FAERS Safety Report 8191372-3 (Version None)
Quarter: 2012Q1

REPORT INFORMATION
  Report Type: 
  Country: None (occurrence: None)
  Receive Date: 20120221
  Receipt Date: 20111117
  Transmission Date: 20120608
  Serious: No
  Sender: FDA-Public Use
  Company Number: 045906

PATIENT
  Sex: Male

DRUGS (3)
  1. DEPAKOTE [Concomitant]
  2. LAMICTAL [Concomitant]
  3. LACOSAMIDE [Suspect]
     Dosage: ORAL
     Route: 048

REACTIONS (1)
  - WHITE BLOOD CELL COUNT DECREASED [None]
